FAERS Safety Report 8361162-7 (Version None)
Quarter: 2012Q2

REPORT INFORMATION
  Report Type: 
  Country: None (occurrence: None)
  Receive Date: 20120515
  Receipt Date: 20110706
  Transmission Date: 20120825
  Serious: No
  Sender: FDA-Public Use
  Company Number: US-ALEXION-A201101026

PATIENT
  Age: 4 Year
  Sex: Female

DRUGS (1)
  1. SOLIRIS [Suspect]
     Dosage: 600 MG
     Route: 042

REACTIONS (1)
  - RASH [None]
